FAERS Safety Report 13593778 (Version 4)
Quarter: 2017Q3

REPORT INFORMATION
  Report Type: Report from Study
  Country: DE (occurrence: DE)
  Receive Date: 20170530
  Receipt Date: 20170830
  Transmission Date: 20171127
  Serious: Yes (Hospitalization)
  Sender: FDA-Public Use
  Company Number: DE-ROCHE-1940058

PATIENT
  Age: 58 Year
  Sex: Female

DRUGS (6)
  1. BLINDED OLAPARIB [Suspect]
     Active Substance: OLAPARIB
     Indication: CERVIX CARCINOMA
     Dosage: DATE OF LAST DOSE PRIOR TO SAE: 21/MAY/2017?DOSE INTERRUPTED ON 23/MAY/2017
     Route: 065
     Dates: start: 20170327, end: 20170524
  2. VESIKUR [Concomitant]
     Active Substance: SOLIFENACIN SUCCINATE
     Indication: URINARY INCONTINENCE
     Route: 048
  3. BEVACIZUMAB. [Suspect]
     Active Substance: BEVACIZUMAB
     Indication: CERVIX CARCINOMA
     Dosage: DATE OF LAST DOS PRIOR TO SAE: 18/APR/2017
     Route: 065
     Dates: start: 20170327, end: 20170524
  4. URO-TABLINEN [Concomitant]
     Indication: URINARY INCONTINENCE
     Route: 048
  5. L-THYROX [Concomitant]
     Active Substance: LEVOTHYROXINE SODIUM
     Indication: HYPOTHYROIDISM
     Route: 048
  6. PANTOZOL [Concomitant]
     Active Substance: PANTOPRAZOLE SODIUM
     Indication: PROPHYLAXIS
     Route: 048

REACTIONS (1)
  - Anaemia [Recovered/Resolved]

NARRATIVE: CASE EVENT DATE: 20170522
